FAERS Safety Report 18487485 (Version 2)
Quarter: 2020Q4

REPORT INFORMATION
  Report Type: Report from Study
  Country: FR (occurrence: FR)
  Receive Date: 20201110
  Receipt Date: 20201117
  Transmission Date: 20210114
  Serious: Yes (Death, Hospitalization, Disabling, Other)
  Sender: FDA-Public Use
  Company Number: FR-GILEAD-2020-0503819

PATIENT
  Age: 74 Year
  Sex: Male
  Weight: 113 kg

DRUGS (22)
  1. EXFORGE [Concomitant]
     Active Substance: AMLODIPINE BESYLATE\VALSARTAN
     Indication: HYPERTENSION
     Dosage: 10 MG/160 MG
     Route: 048
  2. HYPERIUM [Concomitant]
     Active Substance: RILMENIDINE PHOSPHATE
     Indication: HYPERTENSION
     Dosage: 1 MG
     Route: 048
  3. AMAREL [Concomitant]
     Active Substance: GLIMEPIRIDE
     Dosage: 3 MG
     Route: 048
  4. VENTOLINE [SALBUTAMOL] [Concomitant]
     Active Substance: ALBUTEROL SULFATE
     Indication: CHRONIC OBSTRUCTIVE PULMONARY DISEASE
     Route: 048
  5. HEPARINE [HEPARIN] [Concomitant]
     Active Substance: HEPARIN SODIUM
     Dosage: UNK
     Route: 058
     Dates: start: 20200919, end: 20200925
  6. NORADRENALINE (NORPINEPHRINE) [Concomitant]
     Active Substance: NOREPINEPHRINE
     Dosage: UNK
     Dates: start: 20200921, end: 20200925
  7. GENTAMYCINE [GENTAMICIN] [Concomitant]
     Indication: LUNG DISORDER
     Dosage: 1 G, QD
     Route: 042
     Dates: start: 20200921, end: 20200921
  8. KARDEGIC [Concomitant]
     Active Substance: ASPIRIN DL-LYSINE
     Dosage: 75 MG
     Route: 048
  9. LOVENOX [LEVOFLOXACIN] [Concomitant]
     Active Substance: LEVOFLOXACIN
     Indication: ANTICOAGULANT THERAPY
     Dosage: UNK
     Dates: start: 20200920, end: 20200925
  10. REMDESIVIR. [Suspect]
     Active Substance: REMDESIVIR
     Indication: COVID-19
     Dosage: UNK
     Route: 042
     Dates: start: 20200920, end: 20200921
  11. DEXAMETHASONE. [Concomitant]
     Active Substance: DEXAMETHASONE
     Dosage: 40 MG
     Dates: start: 20200923, end: 20200925
  12. METRONIDAZOLE. [Concomitant]
     Active Substance: METRONIDAZOLE
     Indication: LUNG DISORDER
     Dosage: 500 MG, TID
     Route: 042
     Dates: start: 20200921, end: 20200925
  13. DEXAMETHASONE. [Concomitant]
     Active Substance: DEXAMETHASONE
     Dosage: 6 MG
     Route: 042
     Dates: start: 20200920, end: 20200925
  14. SALBUTAMOL [Concomitant]
     Active Substance: ALBUTEROL
     Dosage: UNK
     Dates: start: 20200920, end: 20200921
  15. HEPARINE [HEPARIN SODIUM] [Concomitant]
     Active Substance: HEPARIN SODIUM
     Indication: PROPHYLAXIS
     Dosage: 20000 IU, QD
     Route: 058
     Dates: start: 20200919, end: 20200925
  16. GLUCOPHAGE [Concomitant]
     Active Substance: METFORMIN HYDROCHLORIDE
     Indication: DIABETES MELLITUS
     Dosage: 1000 MG
     Route: 048
  17. CEFOTAXIME [Concomitant]
     Active Substance: CEFOTAXIME SODIUM
     Indication: LUNG DISORDER
     Dosage: 2 G, TID
     Route: 042
     Dates: start: 20200921, end: 20200925
  18. CEFOTAXIME [Concomitant]
     Active Substance: CEFOTAXIME SODIUM
     Indication: ANTIBIOTIC THERAPY
  19. SYMBICORT [Concomitant]
     Active Substance: BUDESONIDE\FORMOTEROL FUMARATE DIHYDRATE
     Indication: CHRONIC OBSTRUCTIVE PULMONARY DISEASE
     Dosage: 400/12
     Route: 048
  20. OXYGEN. [Concomitant]
     Active Substance: OXYGEN
  21. METRONIDAZOLE. [Concomitant]
     Active Substance: METRONIDAZOLE
     Indication: ANTIBIOTIC THERAPY
  22. ATROVENT [Concomitant]
     Active Substance: IPRATROPIUM BROMIDE
     Dosage: UNK
     Dates: start: 20200920, end: 20200921

REACTIONS (1)
  - Acute kidney injury [Fatal]

NARRATIVE: CASE EVENT DATE: 20200921
